FAERS Safety Report 13656341 (Version 4)
Quarter: 2018Q1

REPORT INFORMATION
  Report Type: Other
  Country: FR (occurrence: FR)
  Receive Date: 20170615
  Receipt Date: 20180228
  Transmission Date: 20180508
  Serious: Yes (Death, Hospitalization, Other)
  Sender: FDA-Public Use
  Company Number: FR-ASTELLAS-2017US023138

PATIENT
  Age: 43 Year
  Sex: Female
  Weight: 58 kg

DRUGS (6)
  1. BACLOFEN. [Suspect]
     Active Substance: BACLOFEN
     Indication: MULTIPLE SCLEROSIS
     Dosage: 1.5-1-1.5, THRICE DAILY (ALSO REPORTED AS 45 MG ONCE DAILY)
     Route: 048
  2. VESICARE [Suspect]
     Active Substance: SOLIFENACIN SUCCINATE
     Indication: URINARY TRACT DISORDER
     Dosage: 1 DF, ONCE DAILY (0-0-1)
     Route: 048
  3. BIOTIN [Suspect]
     Active Substance: BIOTIN
     Indication: MULTIPLE SCLEROSIS
     Route: 048
     Dates: start: 20160816, end: 20170522
  4. XATRAL [Suspect]
     Active Substance: ALFUZOSIN
     Indication: URINARY TRACT DISORDER
     Dosage: 1 DF, ONCE DAILY (0-0-1)
     Route: 048
  5. DAFALGAN [Suspect]
     Active Substance: ACETAMINOPHEN
     Indication: MULTIPLE SCLEROSIS
     Route: 048
  6. SEROPLEX [Suspect]
     Active Substance: ESCITALOPRAM OXALATE
     Indication: DEPRESSION
     Dosage: 1 DF, ONCE DAILY (0-0-1)
     Route: 048

REACTIONS (4)
  - Cerebral venous thrombosis [Fatal]
  - Pneumonia [Unknown]
  - Pseudomonas infection [Unknown]
  - Subarachnoid haemorrhage [Unknown]

NARRATIVE: CASE EVENT DATE: 20170521
